FAERS Safety Report 17861569 (Version 3)
Quarter: 2020Q2

REPORT INFORMATION
  Report Type: Spontaneous
  Country: US (occurrence: US)
  Receive Date: 20200604
  Receipt Date: 20200630
  Transmission Date: 20200714
  Serious: Yes (Other)
  Sender: FDA-Public Use
  Company Number: US-GLAXOSMITHKLINE-US2020AMR093259

PATIENT
  Sex: Female

DRUGS (1)
  1. ZEJULA [Suspect]
     Active Substance: NIRAPARIB
     Indication: OVARIAN CANCER
     Dosage: 300 MG, QD
     Dates: start: 20200516

REACTIONS (8)
  - Neoplasm malignant [Unknown]
  - Carbohydrate antigen 125 increased [Unknown]
  - Constipation [Unknown]
  - Cardiomegaly [Unknown]
  - Pleural effusion [Unknown]
  - Ascites [Unknown]
  - Sepsis [Unknown]
  - Pneumonia [Unknown]
